FAERS Safety Report 16101436 (Version 1)
Quarter: 2019Q2

REPORT INFORMATION
  Report Type: Spontaneous
  Country: GB (occurrence: GB)
  Receive Date: 20190321
  Receipt Date: 20190321
  Transmission Date: 20190711
  Serious: No
  Sender: FDA-Public Use
  Company Number: None

PATIENT
  Age: 26 Year
  Sex: Female
  Weight: 95 kg

DRUGS (2)
  1. NEXPLANON [Suspect]
     Active Substance: ETONOGESTREL
     Indication: CONTRACEPTION
  2. LEVOTHYROXINE. [Concomitant]
     Active Substance: LEVOTHYROXINE

REACTIONS (8)
  - Dizziness [None]
  - Abdominal pain upper [None]
  - Night sweats [None]
  - Complication associated with device [None]
  - Headache [None]
  - Insomnia [None]
  - Nausea [None]
  - Menorrhagia [None]

NARRATIVE: CASE EVENT DATE: 20190219
